FAERS Safety Report 15953899 (Version 1)
Quarter: 2019Q1

REPORT INFORMATION
  Report Type: Spontaneous
  Country: US (occurrence: US)
  Receive Date: 20190212
  Receipt Date: 20190212
  Transmission Date: 20190417
  Serious: No
  Sender: FDA-Public Use
  Company Number: US-009507513-1902USA004401

PATIENT

DRUGS (1)
  1. BELSOMRA [Suspect]
     Active Substance: SUVOREXANT
     Dosage: 2 (15 MILLIGRAM) TABLETS NIGHTLY
     Route: 048

REACTIONS (2)
  - Incorrect dosage administered [Unknown]
  - No adverse event [Unknown]
